FAERS Safety Report 9056046 (Version 1)
Quarter: 2013Q1

REPORT INFORMATION
  Report Type: Spontaneous
  Country: US (occurrence: US)
  Receive Date: 20130205
  Receipt Date: 20130205
  Transmission Date: 20140127
  Serious: Yes (Other)
  Sender: FDA-Public Use
  Company Number: US-JNJFOC-20130116473

PATIENT
  Age: 72 None
  Sex: Female
  Weight: 54.43 kg

DRUGS (2)
  1. BENADRYL ALLERGY ULTRATAB [Suspect]
     Indication: RASH GENERALISED
     Dosage: 1-2 TABLETS TWICE A DAY.
     Route: 048
     Dates: start: 20130121, end: 20130124
  2. FLUOCINONIDE [Suspect]
     Indication: RASH
     Route: 065
     Dates: start: 20130121

REACTIONS (2)
  - Blood pressure increased [Recovered/Resolved]
  - Off label use [Unknown]
